FAERS Safety Report 24055281 (Version 1)
Quarter: 2024Q3

REPORT INFORMATION
  Report Type: Spontaneous
  Country: US (occurrence: US)
  Receive Date: 20240705
  Receipt Date: 20240705
  Transmission Date: 20241017
  Serious: No
  Sender: EISAI
  Company Number: US-Eisai-EC-2024-167775

PATIENT
  Age: 76 Year
  Sex: Female

DRUGS (17)
  1. LEQEMBI [Suspect]
     Active Substance: LECANEMAB-IRMB
     Indication: Dementia Alzheimer^s type
     Dosage: DOSE UNKNOWN
     Route: 042
     Dates: start: 20240531
  2. AMIODARONE [Concomitant]
     Active Substance: AMIODARONE
  3. VITAMIN C [Concomitant]
     Active Substance: ASCORBIC ACID
  4. LOW DOSE ASPIRIN [Concomitant]
     Active Substance: ASPIRIN
  5. ATENOLOL [Concomitant]
     Active Substance: ATENOLOL
  6. VITAMIN D3 [Concomitant]
     Active Substance: CHOLECALCIFEROL
  7. IRBESARTAN [Concomitant]
     Active Substance: IRBESARTAN
  8. KCL [Concomitant]
     Active Substance: POTASSIUM CHLORIDE
  9. FERRIOUS SUFATE [Concomitant]
  10. LASIX [Concomitant]
     Active Substance: FUROSEMIDE
  11. LORATADINE [Concomitant]
     Active Substance: LORATADINE
  12. MEMANTINE [Concomitant]
     Active Substance: MEMANTINE
  13. PANTOPRAZOLE [Concomitant]
     Active Substance: PANTOPRAZOLE
  14. PRAVASTATIN [Concomitant]
     Active Substance: PRAVASTATIN
  15. SERTRALINE [Concomitant]
     Active Substance: SERTRALINE HYDROCHLORIDE
  16. SODIUM CHLORIDE [Concomitant]
     Active Substance: SODIUM CHLORIDE
  17. MIRALAX [Concomitant]
     Active Substance: POLYETHYLENE GLYCOL 3350

REACTIONS (7)
  - Chills [Recovered/Resolved]
  - Pyrexia [Recovered/Resolved]
  - Heart rate increased [Recovered/Resolved]
  - Vomiting [Recovered/Resolved]
  - Tremor [Recovered/Resolved]
  - Abdominal discomfort [Recovered/Resolved]
  - Ear haemorrhage [Recovered/Resolved]

NARRATIVE: CASE EVENT DATE: 20240531
